FAERS Safety Report 20143921 (Version 1)
Quarter: 2021Q4

REPORT INFORMATION
  Report Type: Spontaneous
  Country: CN (occurrence: None)
  Receive Date: 20211203
  Receipt Date: 20211203
  Transmission Date: 20220303
  Serious: Yes (Other)
  Sender: FDA-Public Use
  Company Number: CN-ROCHE-2965096

PATIENT
  Age: 39 Year
  Sex: Female

DRUGS (6)
  1. HERCEPTIN [Suspect]
     Active Substance: TRASTUZUMAB
     Indication: Invasive ductal breast carcinoma
     Dosage: THP
     Route: 065
     Dates: start: 20210219
  2. HERCEPTIN [Suspect]
     Active Substance: TRASTUZUMAB
     Dosage: THP
     Route: 065
     Dates: start: 20210310
  3. PERJETA [Suspect]
     Active Substance: PERTUZUMAB
     Indication: Invasive ductal breast carcinoma
     Dosage: THP
     Route: 065
     Dates: start: 20210219
  4. PERJETA [Suspect]
     Active Substance: PERTUZUMAB
     Dosage: THP
     Route: 065
     Dates: start: 20210310
  5. PACLITAXEL [Concomitant]
     Active Substance: PACLITAXEL
     Indication: Invasive ductal breast carcinoma
     Dosage: THP
     Route: 065
     Dates: start: 20210219
  6. PACLITAXEL [Concomitant]
     Active Substance: PACLITAXEL
     Dosage: THP
     Dates: start: 20210310

REACTIONS (3)
  - Myelosuppression [Unknown]
  - Chills [Unknown]
  - Hyperpyrexia [Unknown]
